FAERS Safety Report 5196078-0 (Version None)
Quarter: 2006Q4

REPORT INFORMATION
  Report Type: 
  Country: None (occurrence: None)
  Receive Date: 20061222
  Receipt Date: 20061211
  Transmission Date: 20070319
  Serious: Yes (Hospitalization)
  Sender: FDA-Public Use
  Company Number: DSA_29111_2006

PATIENT
  Age: 74 Year
  Sex: Female

DRUGS (5)
  1. ENALAPRIL MALEATE AND HYDROCHLOROTHIAZIDE [Suspect]
     Indication: HYPERTENSION
     Dosage: DF Q DAY PO
     Route: 048
     Dates: end: 20061110
  2. KETOPROFEN [Suspect]
     Indication: BACK PAIN
     Dosage: 100 MG Q DAY IM
     Dates: start: 20061101, end: 20061110
  3. MORPHINE [Suspect]
     Indication: BACK PAIN
     Dosage: 30 MG BID PO
     Route: 048
     Dates: start: 20061101, end: 20061110
  4. ACETAMINOPHEN AND CODEINE PHOSPHATE [Concomitant]
  5. LEVOTHYROXINE SODIUM [Concomitant]

REACTIONS (6)
  - DEPRESSED LEVEL OF CONSCIOUSNESS [None]
  - DRUG INTERACTION [None]
  - DRUG SCREEN POSITIVE [None]
  - DYSPNOEA [None]
  - OVERDOSE [None]
  - RENAL FAILURE ACUTE [None]
